FAERS Safety Report 6423011-3 (Version None)
Quarter: 2009Q4

REPORT INFORMATION
  Report Type: 
  Country: None (occurrence: None)
  Receive Date: 20091028
  Receipt Date: 20091013
  Transmission Date: 20100525
  Serious: Yes (Hospitalization)
  Sender: FDA-Public Use
  Company Number: US-DEXPHARM-20091785

PATIENT
  Age: 69 Year
  Sex: Male

DRUGS (4)
  1. OMEPRAZOLE [Suspect]
     Indication: GASTROOESOPHAGEAL REFLUX DISEASE
  2. IRBESARTAN [Concomitant]
  3. HYDROCHLOROTHIAZIDE [Concomitant]
  4. EZETIMIBE [Concomitant]

REACTIONS (7)
  - BLADDER HYPERTROPHY [None]
  - DECREASED APPETITE [None]
  - DIALYSIS [None]
  - FATIGUE [None]
  - RENAL FAILURE ACUTE [None]
  - TUBULOINTERSTITIAL NEPHRITIS [None]
  - WEIGHT DECREASED [None]
